FAERS Safety Report 15935259 (Version 2)
Quarter: 2019Q1

REPORT INFORMATION
  Report Type: Report from Study
  Country: None (occurrence: US)
  Receive Date: 20190207
  Receipt Date: 20190224
  Transmission Date: 20190417
  Serious: Yes (Other)
  Sender: FDA-Public Use
  Company Number: US-ABBVIE-19K-163-2651881-00

PATIENT
  Age: 64 Year
  Sex: Female

DRUGS (1)
  1. HUMIRA [Suspect]
     Active Substance: ADALIMUMAB
     Indication: CROHN^S DISEASE
     Route: 058
     Dates: start: 20171208

REACTIONS (4)
  - Retinal disorder [Unknown]
  - Foot deformity [Recovered/Resolved]
  - Cataract [Recovered/Resolved]
  - Breast abscess [Recovered/Resolved]

NARRATIVE: CASE EVENT DATE: 2018
